FAERS Safety Report 24580228 (Version 1)
Quarter: 2024Q4

REPORT INFORMATION
  Report Type: Spontaneous
  Country: US (occurrence: US)
  Receive Date: 20241105
  Receipt Date: 20241105
  Transmission Date: 20250115
  Serious: Yes (Other)
  Sender: ITALFARMACO SPA
  Company Number: US-ITALFARMACO SPA-2164498

PATIENT
  Age: 23 Year
  Sex: Male
  Weight: 63.5 kg

DRUGS (1)
  1. DUVYZAT [Suspect]
     Active Substance: GIVINOSTAT
     Indication: Duchenne muscular dystrophy

REACTIONS (3)
  - Cardiomyopathy [Not Recovered/Not Resolved]
  - Nausea [Unknown]
  - Dyspepsia [Not Recovered/Not Resolved]

NARRATIVE: CASE EVENT DATE: 20241017
